FAERS Safety Report 5916632-5 (Version None)
Quarter: 2008Q4

REPORT INFORMATION
  Report Type: 
  Country: None (occurrence: None)
  Receive Date: 20081013
  Receipt Date: 20081003
  Transmission Date: 20090506
  Serious: Yes (Other)
  Sender: FDA-Public Use
  Company Number: DK-BAXTER-2008BH002426

PATIENT
  Age: 49 Year
  Sex: Male
  Weight: 80 kg

DRUGS (10)
  1. ENDOXAN BAXTER [Suspect]
     Indication: HODGKIN'S DISEASE
     Route: 065
     Dates: start: 20040101
  2. CARBOPLATIN [Concomitant]
     Indication: HODGKIN'S DISEASE
  3. GLUCOCORTICOIDS [Concomitant]
  4. METHYL-GAG [Concomitant]
     Indication: HODGKIN'S DISEASE
     Dates: start: 20040101
  5. IFOSFAMIDE [Concomitant]
     Indication: HODGKIN'S DISEASE
     Dates: start: 20040101
  6. METHOTREXATE [Concomitant]
     Indication: HODGKIN'S DISEASE
     Dates: start: 20040101
  7. ETOPOSIDE [Concomitant]
     Indication: HODGKIN'S DISEASE
     Dates: start: 20040101
  8. DEXAMETHASONE [Concomitant]
     Indication: HODGKIN'S DISEASE
     Dates: start: 20070101
  9. CYTARABINE [Concomitant]
     Indication: HODGKIN'S DISEASE
     Dates: start: 20070101
  10. CISPLATIN [Concomitant]
     Indication: HODGKIN'S DISEASE
     Dates: start: 20070101

REACTIONS (12)
  - BALANCE DISORDER [None]
  - BLINDNESS [None]
  - CATARACT [None]
  - DISEASE PROGRESSION [None]
  - DISEASE RECURRENCE [None]
  - ERECTILE DYSFUNCTION [None]
  - FATIGUE [None]
  - LIVER DISORDER [None]
  - NEURALGIA [None]
  - PULMONARY FUNCTION TEST DECREASED [None]
  - RENAL IMPAIRMENT [None]
  - TOOTH INJURY [None]
